FAERS Safety Report 4833901-0 (Version None)
Quarter: 2005Q4

REPORT INFORMATION
  Report Type: 
  Country: None (occurrence: None)
  Receive Date: 20051122
  Receipt Date: 20051013
  Transmission Date: 20060501
  Serious: Yes (Hospitalization)
  Sender: FDA-Public Use
  Company Number: JP-BOEHRINGER INGELHEIM PHARMACEUTICALS, INC.-2005-BP-18372YA

PATIENT
  Sex: Male

DRUGS (3)
  1. HARNAL [Suspect]
     Indication: BENIGN PROSTATIC HYPERPLASIA
     Route: 048
     Dates: start: 20050329, end: 20050506
  2. HARNAL [Suspect]
     Indication: DYSURIA
  3. FERROUS CITRATE [Concomitant]
     Route: 048
     Dates: start: 20050405, end: 20050506

REACTIONS (2)
  - ANAEMIA [None]
  - RECTAL CANCER [None]
